FAERS Safety Report 7915888-7 (Version None)
Quarter: 2011Q4

REPORT INFORMATION
  Report Type: 
  Country: None (occurrence: None)
  Receive Date: 20111115
  Receipt Date: 20111108
  Transmission Date: 20120403
  Serious: Yes (Hospitalization)
  Sender: FDA-Public Use
  Company Number: ZA-B.I. PHARMACEUTICALS,INC./RIDGEFIELD-2011-AP-00627ZA

PATIENT
  Sex: Female

DRUGS (6)
  1. PREMARIN [Concomitant]
  2. ELZAM [Concomitant]
  3. CARLOC [Concomitant]
  4. OMEGA FATS [Concomitant]
  5. LEXAMIL [Concomitant]
  6. MICARDIS [Suspect]
     Indication: HYPERTENSION

REACTIONS (1)
  - BLOOD SODIUM DECREASED [None]
